FAERS Safety Report 17197065 (Version 1)
Quarter: 2019Q4

REPORT INFORMATION
  Report Type: Spontaneous
  Country: US (occurrence: US)
  Receive Date: 20191224
  Receipt Date: 20191224
  Transmission Date: 20200122
  Serious: No
  Sender: FDA-Public Use
  Company Number: US-SA-2019SA352806

PATIENT
  Age: 62 Year
  Sex: Female

DRUGS (1)
  1. ENOXAPARIN SODIUM - WINTHROP [Suspect]
     Active Substance: ENOXAPARIN SODIUM
     Dosage: 100 MG, BID
     Route: 042
     Dates: start: 20191216

REACTIONS (9)
  - Trichorrhexis [Not Recovered/Not Resolved]
  - Injection site injury [Unknown]
  - Needle issue [Unknown]
  - Product closure issue [Unknown]
  - Incorrect dose administered [Unknown]
  - Poor quality product administered [Unknown]
  - Hair texture abnormal [Not Recovered/Not Resolved]
  - Injection site haemorrhage [Not Recovered/Not Resolved]
  - Product dose omission [Unknown]
